FAERS Safety Report 24145254 (Version 1)
Quarter: 2024Q3

REPORT INFORMATION
  Report Type: Report from Study
  Country: JP (occurrence: JP)
  Receive Date: 20240729
  Receipt Date: 20240729
  Transmission Date: 20241017
  Serious: Yes (Hospitalization, Other)
  Sender: ROCHE
  Company Number: JP-ROCHE-10000034487

PATIENT

DRUGS (5)
  1. RITUXIMAB [Suspect]
     Active Substance: RITUXIMAB
     Indication: Pemphigus
     Route: 042
  2. PREDNISOLONE [Concomitant]
     Active Substance: PREDNISOLONE
  3. DEXCHLORPHENIRAMINE MALEATE [Concomitant]
     Active Substance: DEXCHLORPHENIRAMINE MALEATE
  4. ACETAMINOPHEN [Concomitant]
     Active Substance: ACETAMINOPHEN
  5. METHYLPREDNISOLONE SODIUM SUCCINATE [Concomitant]
     Active Substance: METHYLPREDNISOLONE SODIUM SUCCINATE

REACTIONS (18)
  - Pneumonia [Recovered/Resolved]
  - Lymphocyte count decreased [Unknown]
  - Folliculitis [Unknown]
  - Infusion related reaction [Unknown]
  - Oropharyngeal discomfort [Unknown]
  - Aspartate aminotransferase increased [Unknown]
  - Alanine aminotransferase increased [Unknown]
  - Hepatic function abnormal [Unknown]
  - Dacryocystitis [Unknown]
  - Hypoalbuminaemia [Unknown]
  - Haematuria [Unknown]
  - Arthralgia [Unknown]
  - Pharyngitis [Unknown]
  - Oedema [Unknown]
  - Pruritus [Unknown]
  - Herpes zoster [Unknown]
  - Tinea pedis [Unknown]
  - Body tinea [Unknown]
